FAERS Safety Report 14526865 (Version 1)
Quarter: 2018Q1

REPORT INFORMATION
  Report Type: Spontaneous
  Country: US (occurrence: US)
  Receive Date: 20180212
  Receipt Date: 20180212
  Transmission Date: 20180509
  Serious: Yes (Life-Threatening, Hospitalization, Disabling, Other)
  Sender: FDA-Public Use
  Company Number: None

PATIENT
  Sex: Male
  Weight: 90 kg

DRUGS (1)
  1. OSELTAMIVIR PHOSPHATE CAPSULE USP (GENERIC TAMIFLU) [Suspect]
     Active Substance: OSELTAMIVIR PHOSPHATE
     Indication: INFLUENZA
     Dosage: ?          QUANTITY:1 CAPSULE(S);?
     Route: 048
     Dates: start: 20180210, end: 20180211

REACTIONS (8)
  - Thinking abnormal [None]
  - Homicidal ideation [None]
  - Paranoia [None]
  - Suicidal ideation [None]
  - Hallucination [None]
  - Feeling abnormal [None]
  - Anger [None]
  - Delirium [None]

NARRATIVE: CASE EVENT DATE: 20180211
